FAERS Safety Report 7691247-X (Version None)
Quarter: 2011Q3

REPORT INFORMATION
  Report Type: 
  Country: None (occurrence: None)
  Receive Date: 20110817
  Receipt Date: 20110817
  Transmission Date: 20111222
  Serious: No
  Sender: FDA-Public Use
  Company Number: None

PATIENT
  Age: 54 Year
  Sex: Male
  Weight: 122.7 kg

DRUGS (1)
  1. TESTOSTERONE [Suspect]
     Indication: HORMONE REPLACEMENT THERAPY
     Dosage: EVERY DAY TOP
     Route: 061
     Dates: start: 20100719, end: 20110219

REACTIONS (6)
  - PAIN IN EXTREMITY [None]
  - WOUND [None]
  - WOUND SECRETION [None]
  - NO THERAPEUTIC RESPONSE [None]
  - APPLICATION SITE REACTION [None]
  - DERMATITIS [None]
